FAERS Safety Report 4565831-6 (Version None)
Quarter: 2005Q1

REPORT INFORMATION
  Report Type: 
  Country: None (occurrence: None)
  Receive Date: 20050128
  Receipt Date: 20050106
  Transmission Date: 20050727
  Serious: Yes (Hospitalization)
  Sender: FDA-Public Use
  Company Number: S05-AUT-00145-01

PATIENT
  Age: 59 Year
  Sex: Male
  Weight: 95 kg

DRUGS (6)
  1. LEXAPRO [Suspect]
     Indication: DEPRESSION
     Dosage: 30 MG QD PO
     Route: 048
     Dates: start: 20040101
  2. LEXAPRO [Suspect]
     Indication: POST-TRAUMATIC STRESS DISORDER
     Dosage: 30 MG QD PO
     Route: 048
     Dates: start: 20040101
  3. MINIPRESS [Concomitant]
  4. ATACAND [Concomitant]
  5. ZOCOR [Concomitant]
  6. GLYBURIDE [Concomitant]

REACTIONS (6)
  - ABDOMINAL DISCOMFORT [None]
  - BURNING SENSATION [None]
  - CHEST PAIN [None]
  - DUODENAL ULCER [None]
  - GASTROINTESTINAL HAEMORRHAGE [None]
  - PRESCRIBED OVERDOSE [None]
